FAERS Safety Report 9385825 (Version 1)
Quarter: 2013Q3

REPORT INFORMATION
  Report Type: Report from Study
  Country: BR (occurrence: BR)
  Receive Date: 20130705
  Receipt Date: 20130705
  Transmission Date: 20140515
  Serious: Yes (Death, Hospitalization)
  Sender: FDA-Public Use
  Company Number: BR-ABBOTT-13P-020-1082904-00

PATIENT
  Age: 41 Year
  Sex: Female
  Weight: 56 kg

DRUGS (4)
  1. HUMIRA [Suspect]
     Indication: CROHN^S DISEASE
     Dosage: WEEK 0
     Route: 058
     Dates: start: 20130307
  2. HUMIRA [Suspect]
     Dosage: WEEK 2
     Route: 058
  3. HUMIRA [Suspect]
     Route: 058
     Dates: start: 20130307
  4. AZATHIOPRINE [Concomitant]
     Indication: INFLAMMATION
     Route: 048
     Dates: start: 2009

REACTIONS (5)
  - Death [Fatal]
  - Pyrexia [Unknown]
  - Gingival pain [Not Recovered/Not Resolved]
  - Pyrexia [Not Recovered/Not Resolved]
  - Pain [Unknown]
